FAERS Safety Report 18295964 (Version 1)
Quarter: 2020Q3

REPORT INFORMATION
  Report Type: Spontaneous
  Country: NL (occurrence: NL)
  Receive Date: 20200922
  Receipt Date: 20200922
  Transmission Date: 20201103
  Serious: Yes (Hospitalization, Other)
  Sender: FDA-Public Use
  Company Number: NL-PFIZER INC-2020354584

PATIENT
  Age: 5 Year
  Sex: Male

DRUGS (5)
  1. SOMATROPIN. [Suspect]
     Active Substance: SOMATROPIN
     Dosage: 0.3 MG/M2
     Route: 065
     Dates: start: 2019
  2. SOMATROPIN. [Suspect]
     Active Substance: SOMATROPIN
     Dosage: 0.2 MG/M2
     Route: 065
     Dates: start: 2019
  3. SOMATROPIN. [Suspect]
     Active Substance: SOMATROPIN
     Indication: GROWTH HORMONE DEFICIENCY
     Dosage: 0.7 MG/M2
     Route: 065
     Dates: start: 2019
  4. SOMATROPIN. [Suspect]
     Active Substance: SOMATROPIN
     Dosage: 0.2 MG/M2
     Route: 065
     Dates: start: 2019
  5. SOMATROPIN. [Suspect]
     Active Substance: SOMATROPIN
     Dosage: 0.1 MG/KG, ALTERNATE DAY

REACTIONS (5)
  - Intracranial pressure increased [Recovered/Resolved]
  - Face oedema [Unknown]
  - Central nervous system lesion [Unknown]
  - Depressed level of consciousness [Unknown]
  - Fluid retention [Unknown]

NARRATIVE: CASE EVENT DATE: 201905
